FAERS Safety Report 6791528-8 (Version None)
Quarter: 2010Q2

REPORT INFORMATION
  Report Type: 
  Country: None (occurrence: None)
  Receive Date: 20100624
  Receipt Date: 20090429
  Transmission Date: 20101027
  Serious: Yes (Other)
  Sender: FDA-Public Use
  Company Number: US-PFIZER INC-2008057582

PATIENT
  Sex: Female
  Weight: 57 kg

DRUGS (4)
  1. PROVERA [Suspect]
     Indication: HORMONE REPLACEMENT THERAPY
     Dosage: 10 MG, UNK
     Route: 048
     Dates: start: 19840101, end: 19981201
  2. PREMARIN [Suspect]
     Indication: HORMONE REPLACEMENT THERAPY
     Dates: start: 19840101, end: 19981201
  3. PREMPRO [Suspect]
     Indication: HORMONE REPLACEMENT THERAPY
     Dosage: 0.625/2.5MG
     Dates: start: 19840101, end: 19981201
  4. ESTRADERM [Suspect]
     Indication: HORMONE REPLACEMENT THERAPY
     Dosage: 0.05 MG, UNK

REACTIONS (1)
  - BREAST CANCER FEMALE [None]
